FAERS Safety Report 11802033 (Version 2)
Quarter: 2016Q1

REPORT INFORMATION
  Report Type: Spontaneous
  Country: JP (occurrence: JP)
  Receive Date: 20151204
  Receipt Date: 20160126
  Transmission Date: 20160525
  Serious: Yes (Other)
  Sender: FDA-Public Use
  Company Number: JP-GLAXOSMITHKLINE-JP2015GSK172652

PATIENT
  Age: 75 Year
  Sex: Male
  Weight: 60 kg

DRUGS (1)
  1. ACYCLOVIR. [Suspect]
     Active Substance: ACYCLOVIR
     Dosage: 125 MG, QD
     Route: 042

REACTIONS (5)
  - Hallucination, visual [Unknown]
  - Dysarthria [Unknown]
  - Dyskinesia [Unknown]
  - Toxic encephalopathy [Unknown]
  - Neurotoxicity [Recovered/Resolved]
